FAERS Safety Report 9399634 (Version 2)
Quarter: 2013Q3

REPORT INFORMATION
  Report Type: Spontaneous
  Country: IN (occurrence: None)
  Receive Date: 20130710
  Receipt Date: 20130925
  Transmission Date: 20140515
  Serious: Yes (Other)
  Sender: FDA-Public Use
  Company Number: FK201302337

PATIENT
  Age: 2 Year
  Sex: Female

DRUGS (1)
  1. PIPERACILLIN/TAZOBACTAM [Suspect]
     Indication: BRONCHOPNEUMONIA

REACTIONS (7)
  - Hypokalaemia [None]
  - Pyrexia [None]
  - Cough [None]
  - Dyspnoea [None]
  - Bradycardia [None]
  - Electrocardiogram ST segment depression [None]
  - Metabolic acidosis [None]
